FAERS Safety Report 8380664-0 (Version None)
Quarter: 2012Q2

REPORT INFORMATION
  Report Type: 
  Country: None (occurrence: None)
  Receive Date: 20120523
  Receipt Date: 20120521
  Transmission Date: 20120825
  Serious: Yes (Other)
  Sender: FDA-Public Use
  Company Number: US-BAYER-2012-030219

PATIENT
  Age: 18 Year
  Sex: Female
  Weight: 68.027 kg

DRUGS (1)
  1. MIRENA [Suspect]
     Indication: CONTRACEPTION
     Dosage: 20 MCG/24HR, CONT
     Route: 015
     Dates: start: 20120123, end: 20120416

REACTIONS (6)
  - ABDOMINAL PAIN [None]
  - VAGINAL OEDEMA [None]
  - VASODILATATION [None]
  - MIGRAINE [None]
  - OVARIAN CYST [None]
  - VOMITING [None]
